FAERS Safety Report 5302899-3 (Version None)
Quarter: 2007Q2

REPORT INFORMATION
  Report Type: 
  Country: None (occurrence: None)
  Receive Date: 20070418
  Receipt Date: 20070418
  Transmission Date: 20071010
  Serious: Yes (Other)
  Sender: FDA-Public Use
  Company Number: None

PATIENT
  Age: 7 Year
  Sex: Male
  Weight: 23.587 kg

DRUGS (1)
  1. LISTERINE AGENT COOL BLUE-GLACIER MINT [Suspect]
     Indication: DENTAL DISORDER PROPHYLAXIS
     Dates: start: 20070301, end: 20070403

REACTIONS (3)
  - DYSENTERY [None]
  - PHARMACEUTICAL PRODUCT COMPLAINT [None]
  - POOR QUALITY DRUG ADMINISTERED [None]
